FAERS Safety Report 8913887 (Version 2)
Quarter: 2013Q1

REPORT INFORMATION
  Report Type: Spontaneous
  Country: US (occurrence: US)
  Receive Date: 20121116
  Receipt Date: 20130304
  Transmission Date: 20140127
  Serious: Yes (Other)
  Sender: FDA-Public Use
  Company Number: US-BIOGENIDEC-2012BI053838

PATIENT
  Age: 52 Year
  Sex: Female

DRUGS (2)
  1. TYSABRI [Suspect]
     Indication: MULTIPLE SCLEROSIS
     Route: 042
     Dates: start: 20120608
  2. EPITOL [Concomitant]
     Indication: MYOCLONIC EPILEPSY
     Dates: start: 2009, end: 201208

REACTIONS (6)
  - Convulsion [Recovered/Resolved]
  - Irritability [Not Recovered/Not Resolved]
  - Limb injury [Recovered/Resolved]
  - Face injury [Recovered/Resolved]
  - Pain in extremity [Recovered/Resolved]
  - Eye contusion [Recovered/Resolved]
